FAERS Safety Report 21199466 (Version 1)
Quarter: 2022Q3

REPORT INFORMATION
  Report Type: Spontaneous
  Country: US (occurrence: US)
  Receive Date: 20220811
  Receipt Date: 20220811
  Transmission Date: 20221027
  Serious: Yes (Hospitalization, Other)
  Sender: FDA-Public Use
  Company Number: US-APOTEX-2022AP010891

PATIENT
  Age: 60 Year
  Sex: Male

DRUGS (3)
  1. LITHIUM [Interacting]
     Active Substance: LITHIUM
     Indication: Bipolar disorder
     Dosage: 900 MILLIGRAM, QD
     Route: 065
  2. ASENAPINE [Interacting]
     Active Substance: ASENAPINE
     Indication: Bipolar disorder
     Dosage: 10 MILLIGRAM, Q.H.S.
     Route: 065
  3. TYLENOL [Suspect]
     Active Substance: ACETAMINOPHEN
     Indication: Pyrexia
     Dosage: UNK
     Route: 065

REACTIONS (4)
  - Neuroleptic malignant syndrome [Unknown]
  - Symptom masked [Unknown]
  - Drug interaction [Unknown]
  - Toxicity to various agents [Unknown]
